FAERS Safety Report 23989160 (Version 1)
Quarter: 2024Q2

REPORT INFORMATION
  Report Type: Spontaneous
  Country: JP (occurrence: JP)
  Receive Date: 20240619
  Receipt Date: 20240619
  Transmission Date: 20240716
  Serious: Yes (Other)
  Sender: FDA-Public Use
  Company Number: JP-SUN PHARMACEUTICAL INDUSTRIES LTD-2024RR-452407

PATIENT
  Age: 15 Month
  Sex: Male
  Weight: 9 kg

DRUGS (10)
  1. MIDAZOLAM [Suspect]
     Active Substance: MIDAZOLAM
     Indication: Anaesthesia
     Dosage: UNK
     Route: 065
  2. MIDAZOLAM [Suspect]
     Active Substance: MIDAZOLAM
     Dosage: 0.1 MG/KG/HOUR)
     Route: 065
  3. EPINEPHRINE [Suspect]
     Active Substance: EPINEPHRINE
     Indication: Anaesthesia
     Dosage: 0.05 ?G/KG/MIN
     Route: 065
  4. LEVETIRACETAM [Suspect]
     Active Substance: LEVETIRACETAM
     Indication: Partial seizures
     Dosage: 30  MG/KG
     Route: 065
  5. VECURONIUM [Suspect]
     Active Substance: VECURONIUM BROMIDE
     Indication: Sedation
     Dosage: UNK
     Route: 065
  6. FENTANYL [Suspect]
     Active Substance: FENTANYL\FENTANYL CITRATE
     Indication: Anaesthesia
     Dosage: UNK
     Route: 065
  7. ROCURONIUM [Suspect]
     Active Substance: ROCURONIUM BROMIDE
     Indication: Anaesthesia
     Dosage: UNK
     Route: 065
  8. DEXMEDETOMIDINE [Suspect]
     Active Substance: DEXMEDETOMIDINE
     Indication: Anaesthesia
     Dosage: UNK
     Route: 065
  9. FOSPHENYTOIN [Suspect]
     Active Substance: FOSPHENYTOIN
     Indication: Partial seizures
     Dosage: 22.5  MG/KG
     Route: 065
  10. PHENOBARBITAL [Suspect]
     Active Substance: PHENOBARBITAL
     Indication: Partial seizures
     Dosage: UNK
     Route: 048

REACTIONS (4)
  - Metabolic acidosis [Unknown]
  - Drug ineffective [Unknown]
  - Circulatory collapse [Recovered/Resolved]
  - Arrhythmia [Recovered/Resolved]
